FAERS Safety Report 6367657-X (Version None)
Quarter: 2009Q3

REPORT INFORMATION
  Report Type: 
  Country: None (occurrence: None)
  Receive Date: 20090921
  Receipt Date: 20090911
  Transmission Date: 20100115
  Serious: Yes (Hospitalization)
  Sender: FDA-Public Use
  Company Number: US-ROCHE-656544

PATIENT
  Sex: Female

DRUGS (1)
  1. XELODA [Suspect]
     Dosage: DOSE: 500 MG 8 TABS DAILY
     Route: 065

REACTIONS (3)
  - FALL [None]
  - HEAD INJURY [None]
  - JOINT RANGE OF MOTION DECREASED [None]
